FAERS Safety Report 7003294-1 (Version None)
Quarter: 2010Q3

REPORT INFORMATION
  Report Type: 
  Country: None (occurrence: None)
  Receive Date: 20100920
  Receipt Date: 20100910
  Transmission Date: 20110219
  Serious: Yes (Disabling)
  Sender: FDA-Public Use
  Company Number: FR-ELI_LILLY_AND_COMPANY-FR201007006714

PATIENT
  Age: 53 Year
  Sex: Male
  Weight: 107 kg

DRUGS (9)
  1. ALIMTA [Suspect]
     Indication: LUNG ADENOCARCINOMA
     Dosage: 500 MG/M2, UNKNOWN
     Route: 042
     Dates: start: 20100514
  2. SOLUPRED [Concomitant]
     Indication: PROPHYLAXIS
     Dosage: 50 MG ON DAY 0 AND 1, UNKNOWN
     Route: 065
  3. SOLUPRED [Concomitant]
     Dosage: 40 MG ON DAY 2,3,4, UNKNOWN
     Route: 065
  4. ANTIHISTAMINES [Concomitant]
     Dosage: UNK, UNKNOWN
     Route: 065
  5. AVASTIN [Concomitant]
     Indication: LUNG ADENOCARCINOMA
     Dosage: 7.5 MG/M2, UNK
     Route: 042
     Dates: start: 20100514, end: 20100722
  6. FOLIC ACID [Concomitant]
     Indication: VITAMIN SUPPLEMENTATION
     Route: 048
  7. VITAMIN B-12 [Concomitant]
     Indication: VITAMIN SUPPLEMENTATION
     Route: 030
  8. PRIMPERAN TAB [Concomitant]
     Indication: PROPHYLAXIS
     Dosage: FROM D0 TO D4
  9. XYZAL [Concomitant]

REACTIONS (5)
  - BONE PAIN [None]
  - DERMATITIS [None]
  - ERYTHEMA [None]
  - PRURITUS [None]
  - WALKING DISABILITY [None]
